FAERS Safety Report 19837339 (Version 1)
Quarter: 2021Q3

REPORT INFORMATION
  Report Type: Spontaneous
  Country: US (occurrence: US)
  Receive Date: 20210914
  Receipt Date: 20210914
  Transmission Date: 20211014
  Serious: No
  Sender: FDA-Public Use
  Company Number: None

PATIENT
  Age: 65 Year
  Sex: Female

DRUGS (1)
  1. CHLORTHALIDONE (CHLORTHALIDONE 25MG TAB) [Suspect]
     Active Substance: CHLORTHALIDONE
     Indication: HYPERTENSION
     Route: 048
     Dates: start: 20210619, end: 20210625

REACTIONS (8)
  - Cough [None]
  - Urticaria [None]
  - Diverticulitis [None]
  - Angioedema [None]
  - Joint swelling [None]
  - Dizziness [None]
  - Eye swelling [None]
  - Constipation [None]

NARRATIVE: CASE EVENT DATE: 20210625
